FAERS Safety Report 8912362 (Version 2)
Quarter: 2013Q1

REPORT INFORMATION
  Report Type: Spontaneous
  Country: US (occurrence: None)
  Receive Date: 20121113
  Receipt Date: 20121120
  Transmission Date: 20140127
  Serious: Yes (Other)
  Sender: FDA-Public Use
  Company Number: 2012AP003822

PATIENT
  Age: 52 Year
  Sex: Male

DRUGS (6)
  1. FLUTICASONE PROPIONATE [Suspect]
     Indication: BRONCHITIS CHRONIC
     Route: 055
  2. FLUCONAZOLE [Suspect]
     Route: 048
  3. RITONAVIR [Suspect]
     Indication: HIV INFECTION
  4. EFAVIRENZ [Concomitant]
  5. ATAZANAVIR [Concomitant]
  6. DILTIAZEM [Concomitant]

REACTIONS (18)
  - Cushing^s syndrome [None]
  - Secondary adrenocortical insufficiency [None]
  - Immunosuppression [None]
  - Oral candidiasis [None]
  - Drug interaction [None]
  - Dyspnoea [None]
  - Nasal congestion [None]
  - Wheezing [None]
  - Fatigue [None]
  - Stomatitis [None]
  - Muscular weakness [None]
  - Muscle spasms [None]
  - Dysphonia [None]
  - Odynophagia [None]
  - Blood glucose increased [None]
  - Oedema peripheral [None]
  - Malaise [None]
  - Blood pressure decreased [None]
